FAERS Safety Report 5231399-4 (Version None)
Quarter: 2007Q1

REPORT INFORMATION
  Report Type: 
  Country: None (occurrence: None)
  Receive Date: 20070206
  Receipt Date: 20070202
  Transmission Date: 20070707
  Serious: Yes (Death, Hospitalization)
  Sender: FDA-Public Use
  Company Number: PHRM2007FR00491

PATIENT
  Age: 45 Year
  Sex: Female

DRUGS (12)
  1. SANDOSTATINE /BEL/ [Concomitant]
     Route: 058
     Dates: end: 20061123
  2. PENTASA [Concomitant]
     Dates: end: 20061123
  3. OMEPRAZOLE [Concomitant]
     Dosage: 20 MG PER DAY
     Route: 048
  4. ATARAX /POR/ [Concomitant]
     Dosage: 25 MG, QD
     Route: 048
  5. PIRILENE [Concomitant]
     Dosage: 1500 MG PER DAY
     Route: 048
  6. IDEOS [Concomitant]
     Route: 048
  7. DIFFU K [Concomitant]
     Route: 048
  8. SMECTA ^IPSEN^ [Concomitant]
     Route: 048
  9. LOVENOX [Concomitant]
  10. FOSAMAX [Concomitant]
     Route: 048
  11. RUBOZINC [Concomitant]
     Route: 048
  12. MYFORTIC [Suspect]
     Indication: THYMOMA
     Dosage: 720 MG PER DAY
     Route: 048
     Dates: start: 20061027, end: 20061129

REACTIONS (10)
  - ACUTE RESPIRATORY DISTRESS SYNDROME [None]
  - ATELECTASIS [None]
  - BRONCHITIS [None]
  - DIFFUSE ALVEOLAR DAMAGE [None]
  - DYSPNOEA [None]
  - HYPOXIA [None]
  - LUNG DISORDER [None]
  - LUNG INFECTION PSEUDOMONAL [None]
  - SEPTIC SHOCK [None]
  - SPUTUM PURULENT [None]
